FAERS Safety Report 5421034-4 (Version None)
Quarter: 2007Q3

REPORT INFORMATION
  Report Type: 
  Country: None (occurrence: None)
  Receive Date: 20070821
  Receipt Date: 20070817
  Transmission Date: 20080115
  Serious: Yes (Death)
  Sender: FDA-Public Use
  Company Number: A0667973A

PATIENT
  Age: 60 Year
  Sex: Male
  Weight: 128.2 kg

DRUGS (4)
  1. COREG [Suspect]
     Indication: DRUG USE FOR UNKNOWN INDICATION
     Route: 048
  2. DIGOXIN [Concomitant]
     Dosage: .125MG UNKNOWN
     Route: 048
  3. LASIX [Concomitant]
     Route: 048
  4. LISINOPRIL [Concomitant]
     Route: 048

REACTIONS (1)
  - DEATH [None]
